FAERS Safety Report 7341181-X (Version None)
Quarter: 2011Q1

REPORT INFORMATION
  Report Type: 
  Country: None (occurrence: None)
  Receive Date: 20110228
  Receipt Date: 20110217
  Transmission Date: 20110831
  Serious: Yes (Death)
  Sender: FDA-Public Use
  Company Number: AE11-029

PATIENT
  Age: 44 Year
  Sex: Female

DRUGS (4)
  1. ACETAMINOPHEN W/ PROPOXYPHENE HCL [Suspect]
  2. ETHANOL [Suspect]
  3. MEPERIDINE [Suspect]
  4. IBUPROFEN [Suspect]

REACTIONS (3)
  - COMPLETED SUICIDE [None]
  - RESPIRATORY ARREST [None]
  - CARDIAC ARREST [None]
